FAERS Safety Report 9190551 (Version 2)
Quarter: 2013Q4

REPORT INFORMATION
  Report Type: Report from Study
  Country: GB (occurrence: GB)
  Receive Date: 20130326
  Receipt Date: 20131016
  Transmission Date: 20140711
  Serious: Yes (Hospitalization)
  Sender: FDA-Public Use
  Company Number: GB-009507513-1303GBR011522

PATIENT
  Age: 66 Year
  Sex: Male
  Weight: 101.5 kg

DRUGS (22)
  1. DEXAMETHASONE [Suspect]
     Indication: PLASMA CELL MYELOMA
     Dosage: 40 MG, QD
     Route: 048
     Dates: start: 20120313
  2. REVLIMID [Suspect]
     Indication: PLASMA CELL MYELOMA
     Dosage: 25 MG, QD
     Route: 048
     Dates: start: 20120313, end: 20120326
  3. REVLIMID [Suspect]
     Dosage: 10 MG, QD
     Route: 048
     Dates: start: 20120327
  4. ACYCLOVIR [Concomitant]
     Dosage: UNK
     Dates: start: 20120313
  5. ALLOPURINOL [Concomitant]
     Dosage: UNK
     Dates: start: 20120313, end: 20120320
  6. ALLOPURINOL [Concomitant]
     Dosage: UNK
     Dates: start: 20120330, end: 20120403
  7. CALCICHEW [Concomitant]
     Dosage: UNK
     Dates: start: 200701
  8. CLINDAMYCIN [Concomitant]
     Dosage: UNK
     Dates: start: 20120301, end: 20120312
  9. CLINDAMYCIN [Concomitant]
     Dosage: UNK
     Dates: start: 20120405, end: 20120415
  10. SULFAMETHOXAZOLE (+) TRIMETHOPRIM [Concomitant]
     Dosage: UNK
     Dates: start: 20120313, end: 20120731
  11. DALTEPARIN SODIUM [Concomitant]
     Dosage: UNK
     Dates: start: 20120301, end: 20120312
  12. DALTEPARIN SODIUM [Concomitant]
     Dosage: UNK
     Dates: start: 20120313
  13. DALTEPARIN SODIUM [Concomitant]
     Dosage: UNK
     Dates: start: 20120327
  14. FLUCONAZOLE [Concomitant]
     Dosage: UNK
     Dates: start: 20120313
  15. GABAPENTIN [Concomitant]
     Dosage: UNK
     Dates: start: 201002
  16. LEVOFLOXACIN [Concomitant]
     Dosage: UNK
     Dates: start: 20120228, end: 20120303
  17. LINEZOLID [Concomitant]
     Dosage: UNK
     Dates: start: 20120307, end: 20120312
  18. METOCLOPRAMIDE [Concomitant]
     Dosage: UNK
     Dates: start: 20120313
  19. OMEPRAZOLE [Concomitant]
     Dosage: UNK
     Dates: start: 2007
  20. ACETAMINOPHEN [Concomitant]
     Dosage: UNK
     Dates: start: 20061027
  21. ACETAMINOPHEN [Concomitant]
     Dosage: UNK
     Dates: start: 20120327, end: 20120327
  22. SODIUM CHLORIDE [Concomitant]
     Dosage: UNK
     Dates: start: 20120327, end: 20120327

REACTIONS (1)
  - Skin infection [Recovered/Resolved]
